FAERS Safety Report 15466047 (Version 1)
Quarter: 2018Q4

REPORT INFORMATION
  Report Type: Spontaneous
  Country: US (occurrence: US)
  Receive Date: 20181004
  Receipt Date: 20181004
  Transmission Date: 20190204
  Serious: No
  Sender: FDA-Public Use
  Company Number: US-GALDERMA-US18002247

PATIENT
  Age: 58 Year
  Sex: Male

DRUGS (2)
  1. MIRVASO [Suspect]
     Active Substance: BRIMONIDINE TARTRATE
     Indication: ROSACEA
     Route: 061
     Dates: start: 20180204, end: 20180211
  2. METOPROLOL. [Concomitant]
     Active Substance: METOPROLOL
     Indication: PRODUCT USED FOR UNKNOWN INDICATION

REACTIONS (9)
  - Night sweats [Not Recovered/Not Resolved]
  - Rebound effect [Not Recovered/Not Resolved]
  - Blood pressure increased [Recovered/Resolved]
  - Vision blurred [Not Recovered/Not Resolved]
  - Rash macular [Not Recovered/Not Resolved]
  - Chest discomfort [Recovered/Resolved]
  - Flushing [Not Recovered/Not Resolved]
  - Tinnitus [Not Recovered/Not Resolved]
  - Erythema [Not Recovered/Not Resolved]

NARRATIVE: CASE EVENT DATE: 201802
